FAERS Safety Report 8334676-3 (Version None)
Quarter: 2012Q2

REPORT INFORMATION
  Report Type: 
  Country: None (occurrence: None)
  Receive Date: 20120503
  Receipt Date: 20110502
  Transmission Date: 20120825
  Serious: No
  Sender: FDA-Public Use
  Company Number: US-TEVA-2011002148

PATIENT
  Sex: Female

DRUGS (1)
  1. NUVIGIL [Suspect]
     Indication: HYPERSOMNIA
     Dosage: 150 MILLIGRAM;
     Route: 048
     Dates: start: 20110401, end: 20110501

REACTIONS (2)
  - ANXIETY [None]
  - NERVOUSNESS [None]
